FAERS Safety Report 7342482-1 (Version None)
Quarter: 2011Q1

REPORT INFORMATION
  Report Type: 
  Country: None (occurrence: None)
  Receive Date: 20110310
  Receipt Date: 20110228
  Transmission Date: 20110831
  Serious: No
  Sender: FDA-Public Use
  Company Number: US-PFIZER INC-2011047993

PATIENT
  Sex: Female
  Weight: 113.4 kg

DRUGS (20)
  1. PREDNISONE [Concomitant]
     Dosage: 5 MG, UNK
  2. PREDNISONE [Concomitant]
     Dosage: UNK
  3. FOLIC ACID [Concomitant]
     Dosage: UNK
  4. FOLIC ACID [Concomitant]
     Dosage: UNK
  5. CALCIUM [Concomitant]
     Dosage: UNK
  6. ZINC [Concomitant]
     Dosage: UNK
  7. COUMADIN [Concomitant]
     Indication: ANTICOAGULANT THERAPY
     Dosage: UNK
  8. MELOXICAM [Concomitant]
     Dosage: UNK
  9. REMICADE [Concomitant]
     Indication: ARTHRITIS
  10. ASCORBIC ACID [Concomitant]
     Dosage: UNK
  11. METHOTREXATE [Concomitant]
     Dosage: UNK
  12. FEXOFENADINE [Concomitant]
     Dosage: UNK
  13. LYRICA [Concomitant]
     Dosage: UNK
  14. REMICADE [Concomitant]
     Indication: RHEUMATOID ARTHRITIS
     Dosage: UNK
  15. LASIX [Concomitant]
     Dosage: UNK
  16. POTASSIUM [Concomitant]
     Dosage: UNK
  17. AMIODARONE HCL [Suspect]
     Dosage: UNK
     Route: 042
     Dates: start: 20080101, end: 20100217
  18. PREVACID [Concomitant]
     Dosage: UNK
  19. ATACAND [Concomitant]
     Indication: HYPERTENSION
     Dosage: UNK
  20. MAGNESIUM [Concomitant]
     Dosage: UNK

REACTIONS (1)
  - ATRIAL FIBRILLATION [None]
